FAERS Safety Report 7456142-X (Version None)
Quarter: 2011Q2

REPORT INFORMATION
  Report Type: 
  Country: None (occurrence: None)
  Receive Date: 20110503
  Receipt Date: 20091122
  Transmission Date: 20111010
  Serious: Yes (Death, Other)
  Sender: FDA-Public Use
  Company Number: US-BAYER-200940592NA

PATIENT
  Age: 66 Year
  Sex: Male
  Weight: 82.086 kg

DRUGS (13)
  1. TOPROL-XL [Concomitant]
     Dosage: 100 MG, QD
     Route: 048
  2. AMICAR [Concomitant]
     Dosage: 2 MG FOLLOWED BY 15 MG
     Route: 042
     Dates: start: 20061018
  3. RED BLOOD CELLS [Concomitant]
     Dosage: 2 U, UNK
     Dates: start: 20061018
  4. DOPAMINE HCL [Concomitant]
     Dosage: 3 MCG/KG/MIN DRIP
     Dates: start: 20061018
  5. TRASYLOL [Suspect]
     Indication: CORONARY ARTERY BYPASS
     Dosage: UNK
     Route: 042
     Dates: start: 20061018
  6. ACCUPRIL [Concomitant]
     Dosage: 4 MG, QD
     Route: 048
  7. ZETIA [Concomitant]
     Dosage: 10 MG, QD
     Route: 048
  8. NITROGLYCERIN [Concomitant]
  9. HEPARIN [Concomitant]
     Dosage: 2000 U, UNK
     Route: 042
     Dates: start: 20061018
  10. LIDOCAINE [Concomitant]
     Dosage: UNK
     Route: 042
     Dates: start: 20061018
  11. AMIODARONE [Concomitant]
     Dosage: 150 MG, UNK
     Route: 042
     Dates: start: 20061018
  12. PROTAMINE SULFATE [Concomitant]
     Dosage: 250 MG, UNK
     Route: 042
     Dates: start: 20061018
  13. NORVASC [Concomitant]
     Dosage: 10 MG, QD
     Route: 048

REACTIONS (13)
  - RENAL FAILURE [None]
  - EMOTIONAL DISTRESS [None]
  - STRESS [None]
  - MULTI-ORGAN FAILURE [None]
  - ANXIETY [None]
  - UNEVALUABLE EVENT [None]
  - RENAL IMPAIRMENT [None]
  - DEATH [None]
  - FEAR [None]
  - PAIN [None]
  - ANHEDONIA [None]
  - RENAL INJURY [None]
  - INJURY [None]
